FAERS Safety Report 4369439-7 (Version None)
Quarter: 2004Q2

REPORT INFORMATION
  Report Type: 
  Country: None (occurrence: None)
  Receive Date: 20040527
  Receipt Date: 20040507
  Transmission Date: 20050107
  Serious: Yes (Hospitalization)
  Sender: FDA-Public Use
  Company Number: USA030741568

PATIENT
  Age: 78 Year
  Sex: Female

DRUGS (6)
  1. FORTEO [Suspect]
     Indication: OSTEOPOROSIS
     Dosage: 20 UG/1 DAY
     Dates: start: 20030401
  2. EVISTA [Concomitant]
  3. VITAMIN [Concomitant]
  4. CALCIUM [Concomitant]
  5. KLONOPIN [Concomitant]
  6. BUSPAR [Concomitant]

REACTIONS (8)
  - ARRHYTHMIA [None]
  - ASTHENIA [None]
  - CONDITION AGGRAVATED [None]
  - FEELING ABNORMAL [None]
  - MITRAL VALVE INCOMPETENCE [None]
  - OSTEOARTHRITIS [None]
  - PALPITATIONS [None]
  - PHARMACEUTICAL PRODUCT COMPLAINT [None]
